FAERS Safety Report 16656094 (Version 1)
Quarter: 2019Q3

REPORT INFORMATION
  Report Type: Spontaneous
  Country: US (occurrence: US)
  Receive Date: 20190731
  Receipt Date: 20190731
  Transmission Date: 20191004
  Serious: No
  Sender: FDA-Public Use
  Company Number: None

PATIENT
  Age: 25 Year
  Sex: Female
  Weight: 105.8 kg

DRUGS (2)
  1. CYANOCOBALAMINE [Concomitant]
     Active Substance: CYANOCOBALAMIN
     Dates: start: 20190730
  2. FERRIC CARBOXYMALTOSE [Suspect]
     Active Substance: FERRIC CARBOXYMALTOSE
     Indication: IRON DEFICIENCY ANAEMIA
     Dosage: ?          OTHER FREQUENCY:WEEKLY FOR 2 DOSES;?
     Route: 042
     Dates: start: 20190730

REACTIONS (3)
  - Infusion related reaction [None]
  - Dizziness [None]
  - Throat irritation [None]

NARRATIVE: CASE EVENT DATE: 20190730
